FAERS Safety Report 7284008-7 (Version None)
Quarter: 2011Q1

REPORT INFORMATION
  Report Type: 
  Country: None (occurrence: None)
  Receive Date: 20110131
  Receipt Date: 20110114
  Transmission Date: 20110831
  Serious: Yes (Hospitalization)
  Sender: FDA-Public Use
  Company Number: 025188

PATIENT
  Sex: Female

DRUGS (7)
  1. KEPPRA [Suspect]
     Indication: CONVULSION
     Dosage: (500 MG, 3 TABLETS BY MOUTH TWO TIMES A DAY ORAL
     Route: 048
  2. CARBATROL [Concomitant]
  3. SIMVASTATIN [Concomitant]
  4. LACOSAMIDE [Suspect]
     Indication: CONVULSION
     Dosage: (100 MG BID ORAL), (200 MG BID ORAL)
     Route: 048
     Dates: start: 20101014, end: 20101001
  5. LACOSAMIDE [Suspect]
     Indication: CONVULSION
     Dosage: (100 MG BID ORAL), (200 MG BID ORAL)
     Route: 048
     Dates: start: 20101001, end: 20101111
  6. LACOSAMIDE [Suspect]
     Indication: CONVULSION
     Dosage: (100 MG BID ORAL), (200 MG BID ORAL)
     Route: 048
     Dates: start: 20101001, end: 20101001
  7. KEPPRA [Suspect]
     Indication: CONVULSION
     Dosage: 1500 MG BID)
     Dates: start: 20101229

REACTIONS (5)
  - INTRACRANIAL PRESSURE INCREASED [None]
  - SINUS BRADYCARDIA [None]
  - DYSPNOEA [None]
  - ANXIETY [None]
  - HYPERTENSION [None]
